FAERS Safety Report 9208309 (Version 1)
Quarter: 2013Q2

REPORT INFORMATION
  Report Type: Spontaneous
  Country: ZA (occurrence: IN)
  Receive Date: 20130403
  Receipt Date: 20130403
  Transmission Date: 20140414
  Serious: Yes (Hospitalization)
  Sender: FDA-Public Use
  Company Number: IN-ALLERGAN-1304360US

PATIENT
  Age: 27 Year
  Sex: Male
  Weight: 70 kg

DRUGS (2)
  1. BOTOX? [Suspect]
     Indication: MUSCLE SPASTICITY
     Dosage: 700 UNITS, SINGLE
     Dates: start: 20130227, end: 20130227
  2. EPUIM [Concomitant]
     Indication: EPILEPSY

REACTIONS (8)
  - Abasia [Unknown]
  - Fatigue [Unknown]
  - Muscular weakness [Unknown]
  - Dysphagia [Unknown]
  - Somnolence [Unknown]
  - Eyelid ptosis [Unknown]
  - Ocular hyperaemia [Unknown]
  - Injection site urticaria [Unknown]
